FAERS Safety Report 5257054-2 (Version None)
Quarter: 2007Q1

REPORT INFORMATION
  Report Type: 
  Country: None (occurrence: None)
  Receive Date: 20070305
  Receipt Date: 20070305
  Transmission Date: 20070707
  Serious: Yes (Disabling)
  Sender: FDA-Public Use
  Company Number: None

PATIENT
  Age: 39 Year
  Sex: Female
  Weight: 61.2356 kg

DRUGS (2)
  1. ASTELIN [Suspect]
     Indication: SINUSITIS
     Dosage: 1 SPRAY EACH NOSTRIL   1-2 X DAY  NASAL
     Route: 045
     Dates: start: 19960501, end: 19960507
  2. ASTELIN [Suspect]
     Indication: UPPER RESPIRATORY TRACT INFECTION
     Dosage: 1 SPRAY EACH NOSTRIL   1-2 X DAY  NASAL
     Route: 045
     Dates: start: 19960501, end: 19960507

REACTIONS (8)
  - ABASIA [None]
  - COORDINATION ABNORMAL [None]
  - DYSPNOEA [None]
  - EMOTIONAL DISORDER [None]
  - HYPOAESTHESIA [None]
  - MYELITIS TRANSVERSE [None]
  - PARAESTHESIA [None]
  - THINKING ABNORMAL [None]
